FAERS Safety Report 12850425 (Version 1)
Quarter: 2016Q4

REPORT INFORMATION
  Report Type: Spontaneous
  Country: US (occurrence: US)
  Receive Date: 20161014
  Receipt Date: 20161014
  Transmission Date: 20170207
  Serious: Yes (Hospitalization)
  Sender: FDA-Public Use
  Company Number: US-TARO-2016TAR00851

PATIENT
  Age: 76 Year
  Sex: Male
  Weight: 117.91 kg

DRUGS (14)
  1. ZINC [Concomitant]
     Active Substance: ZINC\ZINC CHLORIDE
  2. PLAVIX [Concomitant]
     Active Substance: CLOPIDOGREL BISULFATE
  3. TAMSULOSIN [Concomitant]
     Active Substance: TAMSULOSIN
  4. ASCORBIC ACID. [Concomitant]
     Active Substance: ASCORBIC ACID
  5. WARFARIN SODIUM TABLETS USP 1MG [Suspect]
     Active Substance: WARFARIN SODIUM
     Indication: ATRIAL FIBRILLATION
     Dosage: 3 MG, 1X/DAY
     Route: 048
     Dates: start: 2006
  6. MULTI B GROUP [Concomitant]
  7. LOSARTAN. [Concomitant]
     Active Substance: LOSARTAN
  8. BUMEX [Concomitant]
     Active Substance: BUMETANIDE
  9. AVODART [Concomitant]
     Active Substance: DUTASTERIDE
  10. GABAPENTIN. [Concomitant]
     Active Substance: GABAPENTIN
  11. OXYCODONE [Concomitant]
     Active Substance: OXYCODONE
  12. TYLENOL [Concomitant]
     Active Substance: ACETAMINOPHEN
  13. DILTIAZEM. [Concomitant]
     Active Substance: DILTIAZEM
  14. UNSPECIFIED INSULIN [Concomitant]
     Active Substance: INSULIN NOS

REACTIONS (6)
  - Fall [Recovered/Resolved]
  - Road traffic accident [Recovered/Resolved]
  - Contusion [Not Recovered/Not Resolved]
  - Haematoma [Not Recovered/Not Resolved]
  - International normalised ratio decreased [Recovered/Resolved]
  - Cellulitis [Recovered/Resolved]

NARRATIVE: CASE EVENT DATE: 2010
